FAERS Safety Report 19974704 (Version 1)
Quarter: 2021Q4

REPORT INFORMATION
  Report Type: Spontaneous
  Country: US (occurrence: US)
  Receive Date: 20211020
  Receipt Date: 20211020
  Transmission Date: 20220303
  Serious: No
  Sender: FDA-Public Use
  Company Number: US-AMNEAL PHARMACEUTICALS-2021-AMRX-01332

PATIENT
  Sex: Male
  Weight: 90 kg

DRUGS (2)
  1. AZELASTINE HYDROCHLORIDE [Suspect]
     Active Substance: AZELASTINE HYDROCHLORIDE
     Indication: Productive cough
     Dosage: 2 DOSAGE FORM, 2 /DAY
     Route: 045
     Dates: start: 2021, end: 2021
  2. PREDNISONE [Suspect]
     Active Substance: PREDNISONE
     Indication: Productive cough
     Dosage: UNK
     Route: 045
     Dates: start: 2021

REACTIONS (2)
  - Visual impairment [Not Recovered/Not Resolved]
  - Dizziness [Not Recovered/Not Resolved]

NARRATIVE: CASE EVENT DATE: 20210101
